FAERS Safety Report 12500827 (Version 4)
Quarter: 2017Q3

REPORT INFORMATION
  Report Type: Spontaneous
  Country: US (occurrence: US)
  Receive Date: 20160627
  Receipt Date: 20170809
  Transmission Date: 20171127
  Serious: Yes (Life-Threatening, Other)
  Sender: FDA-Public Use
  Company Number: US-PFIZER INC-2016314293

PATIENT
  Age: 79 Year
  Sex: Female

DRUGS (1)
  1. AMIODARONE HCL [Suspect]
     Active Substance: AMIODARONE HYDROCHLORIDE
     Indication: CARDIOVERSION
     Dosage: 150 MG, UNK
     Route: 042

REACTIONS (4)
  - Arteriospasm coronary [Unknown]
  - Kounis syndrome [Unknown]
  - Cardiogenic shock [Unknown]
  - Vasodilatation [Unknown]
